FAERS Safety Report 4971185-3 (Version None)
Quarter: 2006Q1

REPORT INFORMATION
  Report Type: 
  Country: None (occurrence: None)
  Receive Date: 20060216
  Receipt Date: 20030717
  Transmission Date: 20060701
  Serious: Yes (Other)
  Sender: FDA-Public Use
  Company Number: 2003IM000737

PATIENT
  Age: 73 Year
  Sex: Female
  Weight: 52.1637 kg

DRUGS (10)
  1. INTERFERON GAMMA-1B [Suspect]
     Indication: OVARIAN CANCER
     Dosage: 100 UG, TIW, SUBCUTANEOUS
     Route: 058
     Dates: start: 20030311
  2. CARBOPOLATIN [Suspect]
     Indication: OVARIAN CANCER
     Dosage: 484 MG Q3W, INTRAVENOUS
     Route: 042
     Dates: start: 20030311, end: 20030401
  3. PACLITAXEL [Suspect]
     Indication: OVARIAN CANCER
     Dosage: 264 MG, Q3W, INTRAVENOUS
     Route: 042
     Dates: start: 20030311, end: 20030401
  4. COMPAZINE [Concomitant]
  5. TYLENOL [Concomitant]
  6. MOTRIN [Concomitant]
  7. DECADRON [Concomitant]
  8. ANZEMET [Concomitant]
  9. BENADRYL [Concomitant]
  10. TAGAMET [Concomitant]

REACTIONS (1)
  - NEUTROPENIA [None]
